FAERS Safety Report 7090827-2 (Version None)
Quarter: 2010Q4

REPORT INFORMATION
  Report Type: 
  Country: None (occurrence: None)
  Receive Date: 20101109
  Receipt Date: 20101104
  Transmission Date: 20110411
  Serious: Yes (Other)
  Sender: FDA-Public Use
  Company Number: US-ABBOTT-10P-163-0682665-00

PATIENT
  Age: 22 Year
  Sex: Female

DRUGS (4)
  1. NORVIR [Suspect]
     Indication: ANTIRETROVIRAL THERAPY
     Route: 048
     Dates: start: 20061113
  2. DARUNAVIR [Suspect]
     Indication: ANTIRETROVIRAL THERAPY
     Dates: start: 20091123
  3. RALTEGRAVIR [Suspect]
     Indication: ANTIRETROVIRAL THERAPY
     Dates: start: 20091123
  4. ETRAVIRINE [Suspect]
     Indication: ANTIRETROVIRAL THERAPY
     Dates: start: 20091123

REACTIONS (2)
  - DRUG DOSE OMISSION [None]
  - OLIGOHYDRAMNIOS [None]
